FAERS Safety Report 20496597 (Version 1)
Quarter: 2022Q1

REPORT INFORMATION
  Report Type: Spontaneous
  Country: US (occurrence: US)
  Receive Date: 20220221
  Receipt Date: 20220221
  Transmission Date: 20220423
  Serious: Yes (Other)
  Sender: FDA-Public Use
  Company Number: US-BAYER-2022A025205

PATIENT
  Age: 82 Year
  Sex: Male

DRUGS (6)
  1. ASPIRIN [Interacting]
     Active Substance: ASPIRIN
  2. WARFARIN [Interacting]
     Active Substance: WARFARIN
  3. SILDENAFIL [Concomitant]
     Active Substance: SILDENAFIL
  4. HYDRALAZINE [Concomitant]
     Active Substance: HYDRALAZINE HYDROCHLORIDE
  5. DIGOXIN [Concomitant]
     Active Substance: DIGOXIN
  6. AMIODARONE [Concomitant]
     Active Substance: AMIODARONE

REACTIONS (2)
  - Vascular access site haematoma [None]
  - Labelled drug-drug interaction medication error [None]
